FAERS Safety Report 5121309-2 (Version None)
Quarter: 2006Q4

REPORT INFORMATION
  Report Type: 
  Country: None (occurrence: None)
  Receive Date: 20061002
  Receipt Date: 20060918
  Transmission Date: 20070319
  Serious: Yes (Other)
  Sender: FDA-Public Use
  Company Number: 2006102131

PATIENT
  Sex: Male

DRUGS (6)
  1. VIAGRA [Suspect]
     Dosage: (100 MG)
  2. OXYCONTIN [Concomitant]
  3. VALIUM [Concomitant]
  4. PLAVIX [Concomitant]
  5. OTHER RESPIRATORY SYSTEM PRODUCTS (OTHER RESPIRATORY SYSTEM PRODUCTS) [Concomitant]
  6. NITROGLYCERIN [Concomitant]

REACTIONS (7)
  - ARTERIAL THERAPEUTIC PROCEDURE [None]
  - CHRONIC OBSTRUCTIVE PULMONARY DISEASE [None]
  - EMPHYSEMA [None]
  - HEADACHE [None]
  - IMPAIRED DRIVING ABILITY [None]
  - LOSS OF CONSCIOUSNESS [None]
  - LOSS OF CONTROL OF LEGS [None]
